FAERS Safety Report 25766192 (Version 1)
Quarter: 2025Q3

REPORT INFORMATION
  Report Type: Spontaneous
  Country: US (occurrence: US)
  Receive Date: 20250905
  Receipt Date: 20250905
  Transmission Date: 20251021
  Serious: No
  Sender: DOMPE FARMACEUTICI
  Company Number: US-FARMAPROD-202408-2881

PATIENT
  Sex: Male

DRUGS (21)
  1. OXERVATE [Suspect]
     Active Substance: CENEGERMIN-BKBJ
     Indication: Neurotrophic keratopathy
     Route: 047
     Dates: start: 20240730
  2. OXERVATE [Suspect]
     Active Substance: CENEGERMIN-BKBJ
  3. LORAZEPAM [Concomitant]
     Active Substance: LORAZEPAM
  4. ESCITALOPRAM OXALATE [Concomitant]
     Active Substance: ESCITALOPRAM OXALATE
  5. TIMOLOL MALEATE [Concomitant]
     Active Substance: TIMOLOL MALEATE
  6. PROLENSA [Concomitant]
     Active Substance: BROMFENAC SODIUM
  7. KETOROLAC TROMETHAMINE [Concomitant]
     Active Substance: KETOROLAC TROMETHAMINE
  8. DIFLUPREDNATE [Concomitant]
     Active Substance: DIFLUPREDNATE
  9. ERYTHROMYCIN [Concomitant]
     Active Substance: ERYTHROMYCIN
  10. ZIRGAN [Concomitant]
     Active Substance: GANCICLOVIR
  11. VALACYCLOVIR [Concomitant]
     Active Substance: VALACYCLOVIR HYDROCHLORIDE
  12. B12 ACTIVE [Concomitant]
  13. ASPIRIN [Concomitant]
     Active Substance: ASPIRIN
  14. FUROSEMIDE [Concomitant]
     Active Substance: FUROSEMIDE
  15. SODIUM BICARBONATE [Concomitant]
     Active Substance: SODIUM BICARBONATE
  16. NIFEDIPINE [Concomitant]
     Active Substance: NIFEDIPINE
  17. TAMSULOSIN HYDROCHLORIDE [Concomitant]
     Active Substance: TAMSULOSIN HYDROCHLORIDE
  18. HYDRALAZINE HCL [Concomitant]
     Active Substance: HYDRALAZINE HYDROCHLORIDE
  19. PREDNISONE [Concomitant]
     Active Substance: PREDNISONE
  20. MYCOPHENOLIC ACID [Concomitant]
     Active Substance: MYCOPHENOLIC ACID
  21. TYLENOL [Concomitant]
     Active Substance: ACETAMINOPHEN

REACTIONS (5)
  - Eye pain [Not Recovered/Not Resolved]
  - Accidental overdose [Unknown]
  - Lacrimation increased [Not Recovered/Not Resolved]
  - Rhinorrhoea [Not Recovered/Not Resolved]
  - Hypersensitivity [Unknown]
